FAERS Safety Report 11865435 (Version 1)
Quarter: 2015Q4

REPORT INFORMATION
  Report Type: Report from Study
  Country: FR (occurrence: FR)
  Receive Date: 20151223
  Receipt Date: 20151223
  Transmission Date: 20160305
  Serious: Yes (Other)
  Sender: FDA-Public Use
  Company Number: PHHY2015FR152540

PATIENT
  Age: 88 Year
  Sex: Male
  Weight: 71 kg

DRUGS (11)
  1. PERINDOPRIL [Concomitant]
     Active Substance: PERINDOPRIL
     Indication: HYPERTENSION
     Dosage: 4 MG, QD
     Route: 065
     Dates: start: 2005
  2. ESOMEPRAZOLE [Concomitant]
     Active Substance: ESOMEPRAZOLE
     Indication: GASTROOESOPHAGEAL REFLUX DISEASE
     Dosage: 20 MG, UNK
     Route: 065
     Dates: start: 20131015
  3. ULTIBRO BREEZHALER [Suspect]
     Active Substance: GLYCOPYRRONIUM\INDACATEROL
     Indication: CHRONIC OBSTRUCTIVE PULMONARY DISEASE
     Dosage: 1 DF, QD
     Route: 055
     Dates: start: 20151026, end: 20151102
  4. INDAPAMIDE. [Concomitant]
     Active Substance: INDAPAMIDE
     Indication: HYPERTENSION
     Dosage: 1.25 MG, QD
     Route: 065
     Dates: start: 2005
  5. ATORVASTATIN [Concomitant]
     Active Substance: ATORVASTATIN
     Indication: CORONARY ARTERY BYPASS
     Dosage: 20 MG, UNK
     Route: 065
     Dates: start: 2000
  6. COMBODART [Concomitant]
     Active Substance: DUTASTERIDE\TAMSULOSIN
     Indication: PRODUCT USED FOR UNKNOWN INDICATION
     Dosage: UNK
     Route: 065
     Dates: start: 2009
  7. KARDEGIC [Concomitant]
     Active Substance: ASPIRIN LYSINE
     Indication: CORONARY ARTERY BYPASS
     Dosage: 75 MG, UNK
     Route: 065
     Dates: start: 2000
  8. TRANSIPEG                          /01618701/ [Concomitant]
     Active Substance: POLYETHYLENE GLYCOL 3350\POTASSIUM CHLORIDE\SODIUM BICARBONATE\SODIUM CHLORIDE\SODIUM SULFATE ANHYDROUS
     Indication: CONSTIPATION
     Dosage: 1 DF, UNK
     Route: 065
     Dates: start: 2000
  9. PLAVIX [Concomitant]
     Active Substance: CLOPIDOGREL BISULFATE
     Indication: CORONARY ARTERY BYPASS
     Dosage: 75 MG, UNK
     Route: 065
     Dates: start: 2000
  10. SECTRAL [Concomitant]
     Active Substance: ACEBUTOLOL HYDROCHLORIDE
     Indication: CORONARY ARTERY BYPASS
     Dosage: 100 MG, QD
     Route: 065
     Dates: start: 2000
  11. IPRATROPIUM [Concomitant]
     Active Substance: IPRATROPIUM
     Indication: CHRONIC OBSTRUCTIVE PULMONARY DISEASE
     Dosage: UNK (0.5 MG / 2ML), QD
     Route: 065
     Dates: start: 20150602

REACTIONS (5)
  - Chest pain [Unknown]
  - Arteritis coronary [Unknown]
  - Chest discomfort [Unknown]
  - Chest pain [Recovered/Resolved]
  - Angina pectoris [Recovered/Resolved]

NARRATIVE: CASE EVENT DATE: 20151031
